FAERS Safety Report 12156927 (Version 5)
Quarter: 2016Q2

REPORT INFORMATION
  Report Type: Spontaneous
  Country: IT (occurrence: IT)
  Receive Date: 20160307
  Receipt Date: 20160602
  Transmission Date: 20160815
  Serious: Yes (Death, Life-Threatening, Hospitalization, Other)
  Sender: FDA-Public Use
  Company Number: IT-GILEAD-2016-0201924

PATIENT
  Age: 51 Year
  Sex: Male

DRUGS (12)
  1. DAKLINZA [Suspect]
     Active Substance: DACLATASVIR
     Indication: CHRONIC HEPATITIS C
     Dosage: UNK
     Route: 048
     Dates: start: 20151123, end: 20160303
  2. PANTORC [Concomitant]
     Active Substance: PANTOPRAZOLE SODIUM
  3. ZARIVIZ [Concomitant]
     Active Substance: CEFOTAXIME SODIUM
     Dosage: 2 G, UNK
  4. LANTUS [Concomitant]
     Active Substance: INSULIN GLARGINE
     Dosage: 14 IU, UNK
     Route: 058
  5. SIDERAL [Concomitant]
  6. SOVALDI [Suspect]
     Active Substance: SOFOSBUVIR
     Indication: CHRONIC HEPATITIS C
     Dosage: 400 MG, QD
     Route: 048
     Dates: start: 20151123, end: 20160303
  7. ESCIN [Concomitant]
     Active Substance: ESCIN
  8. CARVEDILOL. [Concomitant]
     Active Substance: CARVEDILOL
     Dosage: 6.25 MG, UNK
     Route: 048
  9. ZOLOFT [Concomitant]
     Active Substance: SERTRALINE HYDROCHLORIDE
  10. FLUNOX [Concomitant]
     Active Substance: FLURAZEPAM HYDROCHLORIDE
     Route: 048
  11. BENEXOL                            /00176001/ [Concomitant]
     Active Substance: CYANOCOBALAMIN\PYRIDOXINE\THIAMINE
  12. HUMALOG [Concomitant]
     Active Substance: INSULIN LISPRO
     Dosage: 18 IU, UNK
     Route: 058

REACTIONS (4)
  - Death [Fatal]
  - Sepsis [Not Recovered/Not Resolved]
  - Retroperitoneal abscess [Not Recovered/Not Resolved]
  - Lactic acidosis [Unknown]

NARRATIVE: CASE EVENT DATE: 20160303
